FAERS Safety Report 5349744-8 (Version None)
Quarter: 2007Q2

REPORT INFORMATION
  Report Type: 
  Country: None (occurrence: None)
  Receive Date: 20070607
  Receipt Date: 20070529
  Transmission Date: 20071010
  Serious: Yes (Death, Other)
  Sender: FDA-Public Use
  Company Number: CA-PFIZER INC-2007045181

PATIENT
  Age: 51 Year
  Sex: Male

DRUGS (1)
  1. LIPITOR [Suspect]
     Route: 048

REACTIONS (4)
  - HEPATOCELLULAR DAMAGE [None]
  - MALAISE [None]
  - MYOCARDIAL INFARCTION [None]
  - PANCREATIC CARCINOMA [None]
